FAERS Safety Report 10068770 (Version 1)
Quarter: 2014Q2

REPORT INFORMATION
  Report Type: Spontaneous
  Country: US (occurrence: US)
  Receive Date: 20140409
  Receipt Date: 20140409
  Transmission Date: 20141212
  Serious: No
  Sender: FDA-Public Use
  Company Number: US-MYLANLABS-2014S1000134

PATIENT
  Age: 71 Year
  Sex: Male
  Weight: 74.84 kg

DRUGS (4)
  1. VALSARTAN AND HYDROCHLOROTHIAZIDE TABLETS [Suspect]
     Indication: HYPERTENSION
     Route: 048
     Dates: start: 20131114, end: 20131221
  2. ASA [Concomitant]
     Route: 048
  3. LIPITOR [Concomitant]
     Route: 048
  4. TOPROL [Concomitant]
     Route: 048

REACTIONS (2)
  - Drug ineffective [Recovered/Resolved]
  - Blood pressure systolic increased [Recovered/Resolved]
